FAERS Safety Report 8891080 (Version 3)
Quarter: 2013Q1

REPORT INFORMATION
  Report Type: Spontaneous
  Country: US (occurrence: US)
  Receive Date: 20121107
  Receipt Date: 20130222
  Transmission Date: 20140127
  Serious: No
  Sender: FDA-Public Use
  Company Number: US-VERTEX PHARMACEUTICAL INC.-2012-024096

PATIENT
  Age: 56 None
  Sex: Male
  Weight: 91 kg

DRUGS (8)
  1. INCIVEK [Suspect]
     Indication: HEPATITIS C
     Dosage: 750 MG, TID
     Route: 048
     Dates: start: 20121020, end: 20121226
  2. RIBAVIRIN [Suspect]
     Indication: HEPATITIS C
     Dosage: 600 MG, BID
     Route: 048
     Dates: start: 20121020, end: 201212
  3. PEGINTERFERON [Suspect]
     Indication: HEPATITIS C
     Dosage: 180 ?G, QW
     Route: 058
     Dates: start: 20121020, end: 201212
  4. CELEXA [Concomitant]
  5. LEVOTHROID [Concomitant]
  6. LITHIUM [Concomitant]
  7. TYLENOL /00020001/ [Concomitant]
  8. PROTONIX [Concomitant]

REACTIONS (7)
  - Insomnia [Not Recovered/Not Resolved]
  - Irritability [Unknown]
  - Body temperature increased [Recovered/Resolved]
  - Rash generalised [Recovered/Resolved]
  - Rectal haemorrhage [Not Recovered/Not Resolved]
  - Anal pruritus [Not Recovered/Not Resolved]
  - Pruritus [Unknown]
